FAERS Safety Report 9147846 (Version 1)
Quarter: 2013Q1

REPORT INFORMATION
  Report Type: Spontaneous
  Country: FR (occurrence: FR)
  Receive Date: 20130307
  Receipt Date: 20130307
  Transmission Date: 20140127
  Serious: Yes (Life-Threatening, Hospitalization)
  Sender: FDA-Public Use
  Company Number: FR-ELI_LILLY_AND_COMPANY-FR201303001229

PATIENT
  Age: 56 Year
  Sex: Male

DRUGS (9)
  1. ALIMTA [Suspect]
     Indication: LUNG NEOPLASM MALIGNANT
     Dosage: 835 MG, UNKNOWN
     Route: 042
     Dates: start: 20120928, end: 20120928
  2. CARBOPLATIN [Concomitant]
     Dosage: 641 MG, UNKNOWN
     Route: 042
     Dates: start: 20120928, end: 20120928
  3. TRACLEER [Concomitant]
     Dosage: 125 MG, BID
  4. LEVOTHYROX [Concomitant]
     Dosage: 100 MG, UNK
  5. TRIATEC [Concomitant]
     Dosage: 1.25 MG, UNK
  6. CALCIDIA [Concomitant]
     Dosage: 2 DF, QD
  7. ALPRAZOLAM [Concomitant]
     Dosage: 1.25 MG, TID
  8. FOLIC ACID [Concomitant]
  9. VITAMIN B12 [Concomitant]

REACTIONS (4)
  - Febrile bone marrow aplasia [Not Recovered/Not Resolved]
  - Thrombocytopenia [Not Recovered/Not Resolved]
  - Anaemia [Not Recovered/Not Resolved]
  - Off label use [Unknown]
